FAERS Safety Report 4477841-8 (Version None)
Quarter: 2004Q4

REPORT INFORMATION
  Report Type: 
  Country: None (occurrence: None)
  Receive Date: 20041014
  Receipt Date: 20041004
  Transmission Date: 20050328
  Serious: Yes (Other)
  Sender: FDA-Public Use
  Company Number: AU-2004-033287

PATIENT
  Sex: Male

DRUGS (3)
  1. SOTALOL HCL [Suspect]
     Dosage: 0.5 TAB(S), BED T., ORAL
     Route: 048
  2. INDERAL ^WYETH-AYERST^ (PROPRANOLOL HYDROCHLORIDE) [Concomitant]
  3. FELODUR (FELODIPINE) [Concomitant]

REACTIONS (1)
  - INTESTINAL HAEMORRHAGE [None]
